FAERS Safety Report 7304029-5 (Version None)
Quarter: 2011Q1

REPORT INFORMATION
  Report Type: 
  Country: None (occurrence: None)
  Receive Date: 20110221
  Receipt Date: 20110211
  Transmission Date: 20110831
  Serious: Yes (Other)
  Sender: FDA-Public Use
  Company Number: IT-ABBOTT-11P-083-0704838-00

PATIENT
  Age: 4 Year
  Sex: Female

DRUGS (2)
  1. ACYCLOVIR [Interacting]
     Indication: HERPES ZOSTER
     Route: 042
  2. CYCLOSPORINE [Suspect]
     Indication: NEPHROTIC SYNDROME
     Dosage: 5 MG/KG/DAY

REACTIONS (3)
  - RENAL FAILURE ACUTE [None]
  - TUBULOINTERSTITIAL NEPHRITIS [None]
  - DRUG INTERACTION [None]
